FAERS Safety Report 20227831 (Version 1)
Quarter: 2021Q4

REPORT INFORMATION
  Report Type: Spontaneous
  Country: NL (occurrence: NL)
  Receive Date: 20211224
  Receipt Date: 20211224
  Transmission Date: 20220303
  Serious: Yes (Other)
  Sender: FDA-Public Use
  Company Number: None

PATIENT
  Sex: Female
  Weight: 63 kg

DRUGS (2)
  1. ZYPREXA [Suspect]
     Active Substance: OLANZAPINE
     Indication: Sleep disorder
     Dosage: 2.5 MG, DAILY (1 X PER DAG 1 STUK, LATER AFGEBOUWD_
     Route: 065
     Dates: start: 201802
  2. ZYPREXA [Suspect]
     Active Substance: OLANZAPINE
     Indication: Post-traumatic stress disorder

REACTIONS (15)
  - Syncope [Recovering/Resolving]
  - Fluid retention [Recovered/Resolved]
  - Breast pain [Recovered/Resolved]
  - Hormone level abnormal [Recovering/Resolving]
  - Extrasystoles [Recovered/Resolved]
  - Palpitations [Recovered/Resolved]
  - Chest pain [Recovered/Resolved]
  - Premenstrual syndrome [Recovered/Resolved]
  - Endometrial hypoplasia [Recovering/Resolving]
  - Dissociation [Recovering/Resolving]
  - Breast swelling [Recovered/Resolved]
  - Menstruation irregular [Recovering/Resolving]
  - Libido decreased [Recovered/Resolved]
  - Dizziness [Recovering/Resolving]
  - Weight increased [Recovered/Resolved]
